FAERS Safety Report 23562392 (Version 4)
Quarter: 2024Q2

REPORT INFORMATION
  Report Type: Spontaneous
  Country: US (occurrence: US)
  Receive Date: 20240226
  Receipt Date: 20240624
  Transmission Date: 20240716
  Serious: Yes (Other)
  Sender: FDA-Public Use
  Company Number: US-SA-SAC20240219000188

PATIENT
  Age: 12 Year
  Sex: Male

DRUGS (6)
  1. ALPROLIX [Suspect]
     Active Substance: EFTRENONACOG ALFA
     Indication: Factor IX deficiency
     Dosage: 4300 U, QW
     Route: 042
     Dates: start: 201501
  2. ALPROLIX [Suspect]
     Active Substance: EFTRENONACOG ALFA
     Indication: Factor IX deficiency
     Dosage: 4300 U, QW
     Route: 042
     Dates: start: 201501
  3. ALPROLIX [Suspect]
     Active Substance: EFTRENONACOG ALFA
     Dosage: 5400 U, QW
     Route: 042
     Dates: start: 201501
  4. ALPROLIX [Suspect]
     Active Substance: EFTRENONACOG ALFA
     Dosage: 5400 U, QW
     Route: 042
     Dates: start: 201501
  5. ALPROLIX [Suspect]
     Active Substance: EFTRENONACOG ALFA
     Dosage: 5400 U, ON-DEMAND PRN
     Route: 042
     Dates: start: 201501
  6. ALPROLIX [Suspect]
     Active Substance: EFTRENONACOG ALFA
     Dosage: 5400 U, ON-DEMAND PRN
     Route: 042
     Dates: start: 201501

REACTIONS (3)
  - Haematochezia [Recovered/Resolved]
  - Haemorrhage [Unknown]
  - Anal fissure [Recovered/Resolved]

NARRATIVE: CASE EVENT DATE: 20240101
